FAERS Safety Report 10257963 (Version 2)
Quarter: 2014Q2

REPORT INFORMATION
  Report Type: Spontaneous
  Country: GB (occurrence: GB)
  Receive Date: 20140625
  Receipt Date: 20140626
  Transmission Date: 20141212
  Serious: Yes (Other)
  Sender: FDA-Public Use
  Company Number: GB-ABBVIE-14K-167-1251931-00

PATIENT
  Age: 30 Year
  Sex: Female

DRUGS (1)
  1. EPILIM CHRONO [Suspect]
     Indication: EPILEPSY
     Route: 048

REACTIONS (2)
  - Convulsion [Recovered/Resolved]
  - Drug dose omission [Unknown]
